FAERS Safety Report 9991013 (Version 1)
Quarter: 2014Q1

REPORT INFORMATION
  Report Type: Report from Study
  Country: US (occurrence: US)
  Receive Date: 20140310
  Receipt Date: 20140310
  Transmission Date: 20141002
  Serious: No
  Sender: FDA-Public Use
  Company Number: US-ABBVIE-13P-163-1135668-00

PATIENT
  Age: 59 Year
  Sex: Female
  Weight: 55.39 kg

DRUGS (8)
  1. HUMIRA [Suspect]
     Indication: CROHN^S DISEASE
     Dates: start: 2008
  2. NORVASC [Concomitant]
     Indication: HYPERTENSION
  3. LISINOPRIL [Concomitant]
     Indication: HYPERTENSION
  4. OMEPRAZOLE [Concomitant]
     Indication: GASTROOESOPHAGEAL REFLUX DISEASE
  5. SYNTHROID [Concomitant]
     Indication: HYPERTHYROIDISM
  6. XANAX [Concomitant]
     Indication: ANXIETY
  7. AMBIEN [Concomitant]
     Indication: INSOMNIA
  8. DYCLOFENAC [Concomitant]
     Indication: PAIN

REACTIONS (1)
  - Pneumonia [Recovered/Resolved]
